FAERS Safety Report 10239070 (Version 1)
Quarter: 2014Q1

REPORT INFORMATION
  Report Type: Spontaneous
  Country: US (occurrence: None)
  Receive Date: 20140306
  Receipt Date: 20140306
  Transmission Date: 20141002
  Serious: Yes (Other)
  Sender: FDA-Public Use
  Company Number: 163-21880-13041782

PATIENT
  Age: 86 Year
  Sex: Female
  Weight: 72.58 kg

DRUGS (2)
  1. REVLIMID [Suspect]
     Indication: PLASMA CELL MYELOMA
     Route: 048
     Dates: start: 20121116, end: 20130417
  2. SINEMET (SINEMET) [Concomitant]

REACTIONS (1)
  - Clostridium difficile colitis [None]
